FAERS Safety Report 24885268 (Version 1)
Quarter: 2025Q1

REPORT INFORMATION
  Report Type: Spontaneous
  Country: DE (occurrence: DE)
  Receive Date: 20250124
  Receipt Date: 20250124
  Transmission Date: 20250409
  Serious: Yes (Other)
  Sender: TEVA
  Company Number: None

PATIENT
  Age: 38 Year
  Sex: Female
  Weight: 85 kg

DRUGS (10)
  1. RISPERIDONE [Suspect]
     Active Substance: RISPERIDONE
     Indication: Product used for unknown indication
     Route: 048
     Dates: start: 20100816, end: 20100816
  2. PERAZINE [Suspect]
     Active Substance: PERAZINE
     Indication: Product used for unknown indication
     Route: 048
     Dates: start: 20100816, end: 20100816
  3. MELPERONE [Suspect]
     Active Substance: MELPERONE
     Indication: Product used for unknown indication
     Route: 048
     Dates: start: 20100816, end: 20100816
  4. RISPERIDONE [Suspect]
     Active Substance: RISPERIDONE
     Indication: Product used for unknown indication
     Route: 048
     Dates: start: 20100816, end: 20100816
  5. PIPAMPERONE HYDROCHLORIDE [Suspect]
     Active Substance: PIPAMPERONE HYDROCHLORIDE
     Indication: Product used for unknown indication
     Dosage: 10 SEPERATED DOSES OVERDOSE: 400 MG AT MOST (SINGLE DOSAGE); PIPAMPERON HEXAL
     Route: 048
     Dates: start: 20100816, end: 20100816
  6. INVEGA [Suspect]
     Active Substance: PALIPERIDONE
     Indication: Product used for unknown indication
     Route: 048
     Dates: start: 20100816, end: 20100816
  7. MELPERONE [Suspect]
     Active Substance: MELPERONE
     Indication: Product used for unknown indication
     Route: 048
     Dates: start: 20100816, end: 20100816
  8. INVEGA [Suspect]
     Active Substance: PALIPERIDONE
     Indication: Product used for unknown indication
     Dosage: 10 SEPERATED DOSES OVERDOSE: 400 MG AT MOST (SINGLE DOSAGE)
     Route: 048
     Dates: start: 20100816, end: 20100816
  9. PIPAMPERONE HYDROCHLORIDE [Suspect]
     Active Substance: PIPAMPERONE HYDROCHLORIDE
     Indication: Product used for unknown indication
     Route: 048
     Dates: start: 20100816, end: 20100816
  10. PERAZINE [Suspect]
     Active Substance: PERAZINE
     Indication: Product used for unknown indication
     Dosage: 10 SEPERATED DOSES OVERDOSE: 400 MG AT MOST (SINGLE DOSAGE)
     Route: 048
     Dates: start: 20100816, end: 20100816

REACTIONS (4)
  - Suicide attempt [Unknown]
  - Fatigue [Unknown]
  - Intentional overdose [Unknown]
  - Tachycardia [Unknown]

NARRATIVE: CASE EVENT DATE: 20100816
